FAERS Safety Report 4806438-2 (Version None)
Quarter: 2005Q4

REPORT INFORMATION
  Report Type: 
  Country: None (occurrence: None)
  Receive Date: 20051019
  Receipt Date: 20051005
  Transmission Date: 20060501
  Serious: Yes (Other)
  Sender: FDA-Public Use
  Company Number: 196451

PATIENT
  Age: 66 Year
  Sex: Female

DRUGS (6)
  1. AVONEX [Suspect]
     Indication: MULTIPLE SCLEROSIS
     Dosage: 25 UG QW IM
     Route: 030
     Dates: start: 20031008
  2. DURAGESIC-100 [Concomitant]
  3. PAXIL [Concomitant]
  4. ZOMETA [Concomitant]
  5. ARANESP [Concomitant]
  6. NEUPOGEN [Concomitant]

REACTIONS (3)
  - BONE MARROW TRANSPLANT [None]
  - MULTIPLE MYELOMA [None]
  - NEUTROPENIA [None]
